FAERS Safety Report 16604230 (Version 1)
Quarter: 2019Q3

REPORT INFORMATION
  Report Type: Spontaneous
  Country: US (occurrence: US)
  Receive Date: 20190721
  Receipt Date: 20190721
  Transmission Date: 20191004
  Serious: No
  Sender: FDA-Public Use
  Company Number: US-GALDERMA-US19023634

PATIENT
  Age: 22 Year
  Sex: Male

DRUGS (3)
  1. DIFFERIN GEL [Suspect]
     Active Substance: ADAPALENE
     Indication: PRODUCT USED FOR UNKNOWN INDICATION
     Dosage: 0.1%
     Route: 061
     Dates: start: 201901
  2. DIFFERIN GEL [Suspect]
     Active Substance: ADAPALENE
     Route: 061
     Dates: start: 201901
  3. CETAPHIL GENTLE FOAMING CLEANSER [COSMETICS] [Suspect]
     Active Substance: COSMETICS
     Indication: ERYTHEMA
     Route: 061

REACTIONS (2)
  - Drug ineffective [Unknown]
  - Acne [Unknown]

NARRATIVE: CASE EVENT DATE: 201904
